FAERS Safety Report 6831687-1 (Version None)
Quarter: 2010Q3

REPORT INFORMATION
  Report Type: 
  Country: None (occurrence: None)
  Receive Date: 20100706
  Receipt Date: 20100702
  Transmission Date: 20110219
  Serious: Yes (Hospitalization)
  Sender: FDA-Public Use
  Company Number: SP02987

PATIENT
  Age: 81 Year
  Sex: Male

DRUGS (5)
  1. XIFAXAN [Suspect]
     Indication: PRODUCT USED FOR UNKNOWN INDICATION
     Dosage: ORAL
     Route: 048
     Dates: start: 20090520, end: 20090530
  2. CLARITHROMYCIN [Suspect]
     Indication: PRODUCT USED FOR UNKNOWN INDICATION
     Dates: start: 20090520, end: 20090530
  3. CEFOTAXIME SODIUM [Suspect]
     Indication: PRODUCT USED FOR UNKNOWN INDICATION
     Dates: start: 20090520, end: 20090530
  4. DOXYCYCLINE [Suspect]
     Indication: PRODUCT USED FOR UNKNOWN INDICATION
     Dates: start: 20090520, end: 20090530
  5. FLUCONAZOLE [Suspect]
     Indication: PRODUCT USED FOR UNKNOWN INDICATION
     Dates: start: 20090520, end: 20090530

REACTIONS (3)
  - CHOLESTASIS [None]
  - LIVER FUNCTION TEST ABNORMAL [None]
  - PNEUMONIA [None]
